FAERS Safety Report 17159088 (Version 1)
Quarter: 2019Q4

REPORT INFORMATION
  Report Type: Spontaneous
  Country: US (occurrence: US)
  Receive Date: 20191216
  Receipt Date: 20191216
  Transmission Date: 20200122
  Serious: No
  Sender: FDA-Public Use
  Company Number: US-ENDO PHARMACEUTICALS INC-2019-109107

PATIENT
  Sex: Male
  Weight: 104.31 kg

DRUGS (2)
  1. XIAFLEX [Suspect]
     Active Substance: COLLAGENASE CLOSTRIDIUM HISTOLYTICUM
     Indication: PEYRONIE^S DISEASE
     Dosage: UNK UNKNOWN, SECOND CYCLE; TWO INJECTIONS
     Route: 026
     Dates: start: 2019
  2. XIAFLEX [Suspect]
     Active Substance: COLLAGENASE CLOSTRIDIUM HISTOLYTICUM
     Dosage: UNK UNKNOWN, FIRST CYCLE; TWO INJECTIONS
     Route: 026
     Dates: start: 2019

REACTIONS (2)
  - Condition aggravated [Unknown]
  - Peyronie^s disease [Unknown]

NARRATIVE: CASE EVENT DATE: 2019
